FAERS Safety Report 6449033-4 (Version None)
Quarter: 2009Q4

REPORT INFORMATION
  Report Type: 
  Country: None (occurrence: None)
  Receive Date: 20091120
  Receipt Date: 20091116
  Transmission Date: 20100525
  Serious: Yes (Other)
  Sender: FDA-Public Use
  Company Number: B0605462A

PATIENT

DRUGS (3)
  1. SULTANOL [Suspect]
     Indication: DRUG USE FOR UNKNOWN INDICATION
     Route: 055
  2. SERETIDE [Suspect]
     Indication: DRUG USE FOR UNKNOWN INDICATION
     Route: 055
  3. RELENZA [Suspect]
     Indication: DRUG USE FOR UNKNOWN INDICATION
     Route: 055

REACTIONS (5)
  - ASTHMA [None]
  - COUGH [None]
  - HYPOAESTHESIA ORAL [None]
  - ORAL DISCOMFORT [None]
  - PRODUCTIVE COUGH [None]
